FAERS Safety Report 22139316 (Version 1)
Quarter: 2023Q1

REPORT INFORMATION
  Report Type: Spontaneous
  Country: US (occurrence: US)
  Receive Date: 20230327
  Receipt Date: 20230327
  Transmission Date: 20230417
  Serious: No
  Sender: FDA-Public Use
  Company Number: US-drreddys-SPO/USA/23/0161082

PATIENT
  Age: 76 Year
  Sex: Female

DRUGS (2)
  1. ZENATANE [Suspect]
     Active Substance: ISOTRETINOIN
     Indication: Product used for unknown indication
     Dosage: RMA ISSUE DATE: 02 SEPTEMBER 2022 02:43:45 PM, 10 NOVEMBER 2022 06:52:16 AM, 15 DECEMBER 2022 06:42:
  2. ZENATANE [Suspect]
     Active Substance: ISOTRETINOIN
     Dosage: RMA ISSUE DATE: 04 OCTOBER 2022 03:51:19 AM

REACTIONS (2)
  - Drug ineffective [Unknown]
  - Product quality issue [Unknown]
